FAERS Safety Report 13553768 (Version 1)
Quarter: 2017Q2

REPORT INFORMATION
  Report Type: Spontaneous
  Country: DE (occurrence: DE)
  Receive Date: 20170517
  Receipt Date: 20170517
  Transmission Date: 20170830
  Serious: Yes (Other)
  Sender: FDA-Public Use
  Company Number: DE-ASTRAZENECA-2017SE51272

PATIENT
  Sex: Female

DRUGS (1)
  1. ATACAND [Suspect]
     Active Substance: CANDESARTAN CILEXETIL
     Dosage: 32.0MG UNKNOWN
     Route: 048

REACTIONS (2)
  - Dizziness [Unknown]
  - Cerebrovascular accident [Unknown]
